FAERS Safety Report 7111316-2 (Version None)
Quarter: 2010Q4

REPORT INFORMATION
  Report Type: 
  Country: None (occurrence: None)
  Receive Date: 20101118
  Receipt Date: 20101105
  Transmission Date: 20110411
  Serious: Yes (Other)
  Sender: FDA-Public Use
  Company Number: PHHY2010US75486

PATIENT
  Sex: Male

DRUGS (1)
  1. EXJADE [Suspect]
     Indication: ANAEMIA HAEMOLYTIC AUTOIMMUNE
     Dosage: 1375 MG, QD
     Route: 048
     Dates: start: 20100201, end: 20100401

REACTIONS (3)
  - BLINDNESS [None]
  - DEAFNESS [None]
  - HEPATIC ENZYME INCREASED [None]
